FAERS Safety Report 16115071 (Version 1)
Quarter: 2019Q1

REPORT INFORMATION
  Report Type: Spontaneous
  Country: US (occurrence: US)
  Receive Date: 20190325
  Receipt Date: 20190325
  Transmission Date: 20190418
  Serious: No
  Sender: FDA-Public Use
  Company Number: US-SMITH AND NEPHEW, INC-2018SMT00061

PATIENT
  Sex: Male
  Weight: 108.84 kg

DRUGS (15)
  1. MULTI-VITAMIN [Concomitant]
     Active Substance: .ALPHA.-TOCOPHEROL ACETATE, DL-\ASCORBIC ACID\CYANOCOBALAMIN\FLUORIDE ION\FOLIC ACID\NIACIN\PYRIDOXINE\RIBOFLAVIN\THIAMINE\VITAMIN A\VITAMIN D
  2. TYLENOL [Concomitant]
     Active Substance: ACETAMINOPHEN
  3. ROSUVASTATIN. [Concomitant]
     Active Substance: ROSUVASTATIN
  4. VITAMIN C [Concomitant]
     Active Substance: ASCORBIC ACID
  5. TRAVATAN Z [Concomitant]
     Active Substance: TRAVOPROST
  6. PREDNISOLONE. [Concomitant]
     Active Substance: PREDNISOLONE
     Route: 047
  7. UNSPECIFIED STOOL SOFTENER [Concomitant]
  8. MORPHINE SULFATE TIME RELEASED [Concomitant]
  9. COLLAGENASE SANTYL [Suspect]
     Active Substance: COLLAGENASE CLOSTRIDIUM HISTOLYTICUM
     Indication: WOUND
     Route: 061
     Dates: start: 20180228, end: 20180402
  10. OXYCODONE [Concomitant]
     Active Substance: OXYCODONE
  11. UNSPECIFIED MEDICATION FOR PROSTATE PROBLEMS/INCONTINENCE [Concomitant]
  12. WARFARIN [Concomitant]
     Active Substance: WARFARIN
  13. UNSPECIFIED HEART MEDICATION [Concomitant]
     Active Substance: UNSPECIFIED INGREDIENT
  14. TIMOLOL. [Concomitant]
     Active Substance: TIMOLOL
  15. LACTULOSE. [Concomitant]
     Active Substance: LACTULOSE

REACTIONS (3)
  - Wound secretion [Recovering/Resolving]
  - Wound complication [Unknown]
  - Application site swelling [Unknown]

NARRATIVE: CASE EVENT DATE: 2018
